FAERS Safety Report 9133858 (Version 1)
Quarter: 2013Q1

REPORT INFORMATION
  Report Type: Spontaneous
  Country: GR (occurrence: GR)
  Receive Date: 20130303
  Receipt Date: 20130303
  Transmission Date: 20140127
  Serious: Yes (Other)
  Sender: FDA-Public Use
  Company Number: GR-ROXANE LABORATORIES, INC.-2013-RO-00305RO

PATIENT
  Age: 24 Year
  Sex: Male

DRUGS (2)
  1. RISPERIDONE [Suspect]
     Indication: COGNITIVE DISORDER
  2. SODIUM VALPROATE [Suspect]
     Indication: EPILEPSY

REACTIONS (1)
  - Lupus-like syndrome [Recovered/Resolved]
